FAERS Safety Report 15143285 (Version 3)
Quarter: 2018Q4

REPORT INFORMATION
  Report Type: Report from Study
  Country: CO (occurrence: CO)
  Receive Date: 20180713
  Receipt Date: 20181003
  Transmission Date: 20190204
  Serious: Yes (Death, Hospitalization, Other)
  Sender: FDA-Public Use
  Company Number: CO-JNJFOC-20180433967

PATIENT
  Age: 85 Year
  Sex: Male
  Weight: 62 kg

DRUGS (2)
  1. IMBRUVICA [Suspect]
     Active Substance: IBRUTINIB
     Indication: MANTLE CELL LYMPHOMA
     Route: 048
     Dates: start: 201806, end: 20180923
  2. IMBRUVICA [Suspect]
     Active Substance: IBRUTINIB
     Indication: MANTLE CELL LYMPHOMA
     Route: 048
     Dates: start: 20170323, end: 20180605

REACTIONS (11)
  - Delirium febrile [Recovering/Resolving]
  - Depressed mood [Recovering/Resolving]
  - Fall [Recovering/Resolving]
  - Death [Fatal]
  - Abdominal pain [Recovering/Resolving]
  - Prostatic operation [Recovering/Resolving]
  - Eye contusion [Recovering/Resolving]
  - Bacterial infection [Recovering/Resolving]
  - Somnolence [Recovering/Resolving]
  - Gastrointestinal infection [Recovering/Resolving]
  - Coccydynia [Not Recovered/Not Resolved]

NARRATIVE: CASE EVENT DATE: 20180414
